FAERS Safety Report 17940307 (Version 2)
Quarter: 2020Q3

REPORT INFORMATION
  Report Type: Spontaneous
  Country: CN (occurrence: CN)
  Receive Date: 20200624
  Receipt Date: 20200702
  Transmission Date: 20201103
  Serious: Yes (Other)
  Sender: FDA-Public Use
  Company Number: CN-009507513-2006CHN007346

PATIENT
  Age: 41 Year
  Sex: Female

DRUGS (6)
  1. PACLITAXEL ALBUMIN [Suspect]
     Active Substance: PACLITAXEL
     Indication: GASTROINTESTINAL MELANOMA
     Dosage: 200 MILLIGRAM/SQ. METER, QD, ONCE ABOUT EVERY 3 WEEKS
     Dates: start: 201903
  2. TEMOZOLOMIDE. [Suspect]
     Active Substance: TEMOZOLOMIDE
     Indication: METASTATIC MALIGNANT MELANOMA
     Dosage: 200 MILLIGRAM/SQ. METER, QD, FOR FIVE CONSECUTIVE DAYS
     Route: 048
     Dates: start: 2019
  3. TEMOZOLOMIDE. [Suspect]
     Active Substance: TEMOZOLOMIDE
     Indication: GASTROINTESTINAL MELANOMA
     Dosage: 200 MILLIGRAM/SQ. METER, QD, FOR FIVE CONSECUTIVE DAYS
     Route: 048
     Dates: start: 201903, end: 20190328
  4. PEMBROLIZUMAB. [Suspect]
     Active Substance: PEMBROLIZUMAB
     Indication: GASTROINTESTINAL MELANOMA
     Dosage: 100 MILLIGRAM, Q3, TRANSCATHETER ARTERIAL INFUSION (TAI)
     Dates: start: 2019
  5. PEMBROLIZUMAB. [Suspect]
     Active Substance: PEMBROLIZUMAB
     Indication: METASTATIC MALIGNANT MELANOMA
  6. PACLITAXEL ALBUMIN [Suspect]
     Active Substance: PACLITAXEL
     Indication: METASTATIC MALIGNANT MELANOMA

REACTIONS (4)
  - Chills [Unknown]
  - Off label use [Unknown]
  - Pyrexia [Unknown]
  - Leukopenia [Unknown]

NARRATIVE: CASE EVENT DATE: 2019
